FAERS Safety Report 21278476 (Version 1)
Quarter: 2022Q3

REPORT INFORMATION
  Report Type: Spontaneous
  Country: BR (occurrence: BR)
  Receive Date: 20220831
  Receipt Date: 20220831
  Transmission Date: 20221026
  Serious: Yes (Other)
  Sender: FDA-Public Use
  Company Number: BR-CELLTRION INC.-2022BR012679

PATIENT

DRUGS (2)
  1. TRUXIMA [Suspect]
     Active Substance: RITUXIMAB-ABBS
     Indication: Rheumatoid arthritis
     Dosage: 2 AMPOULES ON THE FIRST AND FIFTEENTH DAY, PERFORMING THE INFUSION EVERY SIX MONTHS
  2. ENALAPRIL [Concomitant]
     Active Substance: ENALAPRIL
     Indication: Hypertension
     Dosage: 50 MG, 2 PILL PER DAY (STAR: 2 MONTHS AGO)
     Route: 048

REACTIONS (6)
  - Myelodysplastic syndrome [Unknown]
  - Mobility decreased [Unknown]
  - General physical health deterioration [Unknown]
  - Pain [Unknown]
  - Therapy cessation [Unknown]
  - Off label use [Unknown]
